FAERS Safety Report 5715219-7 (Version None)
Quarter: 2008Q2

REPORT INFORMATION
  Report Type: 
  Country: None (occurrence: None)
  Receive Date: 20080422
  Receipt Date: 20080415
  Transmission Date: 20081010
  Serious: Yes (Death, Other)
  Sender: FDA-Public Use
  Company Number: 2008US000657

PATIENT
  Age: 70 Year
  Sex: Male

DRUGS (15)
  1. PROGRAF [Suspect]
     Indication: LIVER TRANSPLANT
     Dosage: 1 MG, BID, ORAL
     Route: 048
     Dates: start: 19960101, end: 20080216
  2. BISITRA [Concomitant]
  3. MINOXIDIL [Concomitant]
  4. LANOXIN [Concomitant]
  5. CATAPRES [Concomitant]
  6. COSAAR (LOSARTAN POTASSIUM) [Concomitant]
  7. PREDNISONE TAB [Concomitant]
  8. NORVASC [Concomitant]
  9. CIPRO [Concomitant]
  10. PREVACID [Concomitant]
  11. LOPID [Concomitant]
  12. CESULAL [Concomitant]
  13. REGLAN [Concomitant]
  14. LANTUS [Concomitant]
  15. LASIX [Concomitant]

REACTIONS (2)
  - DIALYSIS [None]
  - RENAL FAILURE [None]
